FAERS Safety Report 24286327 (Version 3)
Quarter: 2024Q4

REPORT INFORMATION
  Report Type: Report from Study
  Country: AR (occurrence: AR)
  Receive Date: 20240905
  Receipt Date: 20241206
  Transmission Date: 20250115
  Serious: Yes (Other)
  Sender: NOVARTIS
  Company Number: AR-002147023-NVSC2024AR136604

PATIENT
  Age: 54 Year
  Sex: Male

DRUGS (7)
  1. INCLISIRAN [Suspect]
     Active Substance: INCLISIRAN
     Indication: Hypercholesterolaemia
     Dosage: 284 MG, EVERY 6 MONTHS
     Route: 058
     Dates: start: 20240323
  2. INCLISIRAN [Suspect]
     Active Substance: INCLISIRAN
     Indication: Dyslipidaemia
     Dosage: UNK
     Route: 058
     Dates: start: 20240621
  3. INCLISIRAN [Suspect]
     Active Substance: INCLISIRAN
     Indication: Lipoprotein increased
     Dosage: 284 MG, INJECTABLE
     Route: 065
  4. HYDROCORTISONE [Concomitant]
     Active Substance: HYDROCORTISONE
     Indication: Secondary adrenocortical insufficiency
     Dosage: 20 MG, QD
     Route: 065
     Dates: start: 202112
  5. ROSUVASTATIN [Concomitant]
     Active Substance: ROSUVASTATIN
     Indication: Product used for unknown indication
     Dosage: 5 MG, QD
     Route: 065
     Dates: start: 202204
  6. Omeprasec [Concomitant]
     Indication: Product used for unknown indication
     Dosage: 20 MG, QD
     Route: 065
     Dates: start: 2009
  7. CLONASEDAN [Concomitant]
     Indication: Product used for unknown indication
     Dosage: 2 MG, QD
     Route: 065
     Dates: start: 2009

REACTIONS (4)
  - Pneumonia [Recovered/Resolved]
  - Influenza [Unknown]
  - Lipids decreased [Unknown]
  - Drug effect less than expected [Unknown]

NARRATIVE: CASE EVENT DATE: 20240323
